FAERS Safety Report 4795772-0 (Version None)
Quarter: 2005Q3

REPORT INFORMATION
  Report Type: 
  Country: None (occurrence: None)
  Receive Date: 20050916
  Receipt Date: 20040727
  Transmission Date: 20060218
  Serious: Yes (Other)
  Sender: FDA-Public Use
  Company Number: US-JNJFOC-20040707850

PATIENT
  Age: 2 Year
  Sex: Male
  Weight: 9.9791 kg

DRUGS (2)
  1. TOPAMAX [Suspect]
     Indication: CONVULSION
     Dosage: 15 MG, 2 IN 1 DAY, ORAL
     Route: 048
     Dates: start: 20040717
  2. DILANTIN [Suspect]
     Indication: CONVULSION

REACTIONS (5)
  - CONVULSION [None]
  - DROOLING [None]
  - FEELING HOT [None]
  - LETHARGY [None]
  - WEIGHT INCREASED [None]
